FAERS Safety Report 8926929 (Version 2)
Quarter: 2012Q4

REPORT INFORMATION
  Report Type: 
  Country: US (occurrence: US)
  Receive Date: 20121127
  Receipt Date: 20121228
  Transmission Date: 20130627
  Serious: Yes (Hospitalization)
  Sender: FDA-Public Use
  Company Number: US-PFIZER INC-2012285696

PATIENT
  Age: 15 Year
  Sex: Male
  Weight: 120 kg

DRUGS (1)
  1. CRIZOTINIB [Suspect]
     Indication: ANAPLASTIC LARGE-CELL LYMPHOMA, PRIMARY SYSTEMIC TYPE
     Dosage: 280 mg/m2, 2x/day
     Dates: start: 20120911, end: 20121109

REACTIONS (3)
  - Skin infection [Recovered/Resolved]
  - Infective myositis [Recovered/Resolved]
  - Hypotension [Recovered/Resolved]
